FAERS Safety Report 4674374-0 (Version None)
Quarter: 2005Q2

REPORT INFORMATION
  Report Type: 
  Country: None (occurrence: None)
  Receive Date: 20050524
  Receipt Date: 20050504
  Transmission Date: 20051028
  Serious: Yes (Hospitalization)
  Sender: FDA-Public Use
  Company Number: US_0411107655

PATIENT
  Age: 45 Year
  Sex: Female
  Weight: 102 kg

DRUGS (25)
  1. ZYPREXA [Suspect]
     Dosage: 15 MG
     Dates: start: 19990626, end: 20040709
  2. PROZAC [Suspect]
  3. SYMBYAX [Suspect]
     Dates: end: 20040709
  4. FLUOXETINE HCL [Concomitant]
  5. SEROQUEL [Concomitant]
  6. WELLBUTRIN [Concomitant]
  7. REMERON(MIRTAZAPINE ORIFARM) [Concomitant]
  8. LORAZEPAM [Concomitant]
  9. HALDOL (HALOPERIDOL DECANOATE) [Concomitant]
  10. MODAFINIL [Concomitant]
  11. NAPROXEN SODIUM [Concomitant]
  12. CLONAZEPAM [Concomitant]
  13. ATORVASTATIN [Concomitant]
  14. CELECOXIB [Concomitant]
  15. NITROBID(NITROFURANTOIN) [Concomitant]
  16. HYDROCHLOROTHIAZIDE [Concomitant]
  17. ALPRAZOLAM [Concomitant]
  18. ZANAFLEX [Concomitant]
  19. RANITIDINE [Concomitant]
  20. TOPAMAX [Concomitant]
  21. HYDROXYZINE [Concomitant]
  22. METFORMIN [Concomitant]
  23. IMIPRAMINE [Concomitant]
  24. CENESTIN [Concomitant]
  25. QUETIAPINE [Concomitant]

REACTIONS (15)
  - ADHESION [None]
  - BLOOD CHOLESTEROL INCREASED [None]
  - BLOOD PRESSURE FLUCTUATION [None]
  - HYPERPHAGIA [None]
  - HYPERTENSION [None]
  - HYPOGLYCAEMIA [None]
  - HYSTERECTOMY [None]
  - MUMPS [None]
  - OBESITY [None]
  - POLYDIPSIA [None]
  - POLYTRAUMATISM [None]
  - POLYURIA [None]
  - SALPINGO-OOPHORECTOMY [None]
  - UTERINE DILATION AND CURETTAGE [None]
  - VISION BLURRED [None]
